FAERS Safety Report 14937595 (Version 2)
Quarter: 2018Q2

REPORT INFORMATION
  Report Type: Spontaneous
  Country: HU (occurrence: HU)
  Receive Date: 20180525
  Receipt Date: 20180525
  Transmission Date: 20180711
  Serious: Yes (Hospitalization, Other)
  Sender: FDA-Public Use
  Company Number: PHHY2018HU004575

PATIENT
  Sex: Male

DRUGS (5)
  1. DIAPHYLLIN [Suspect]
     Active Substance: AMINOPHYLLINE
     Indication: COUGH
     Dosage: UNK
     Route: 065
  2. FLUTICASONE+SALMETEROL [Suspect]
     Active Substance: FLUTICASONE PROPIONATE\SALMETEROL XINAFOATE
     Indication: COUGH
     Dosage: UNK
     Route: 065
  3. MONTELUKAST SODIUM. [Suspect]
     Active Substance: MONTELUKAST SODIUM
     Indication: COUGH
     Dosage: UNK
     Route: 065
  4. FLUTICASONE. [Suspect]
     Active Substance: FLUTICASONE
     Indication: COUGH
     Dosage: UNK
     Route: 065
  5. BUDESONIDE, FORMOTEROL FUMARATE [Suspect]
     Active Substance: BUDESONIDE\FORMOTEROL FUMARATE DIHYDRATE
     Indication: COUGH
     Dosage: UNK
     Route: 065

REACTIONS (2)
  - Drug ineffective [Unknown]
  - Eosinophilic granulomatosis with polyangiitis [Unknown]
